FAERS Safety Report 5127962-1 (Version None)
Quarter: 2006Q4

REPORT INFORMATION
  Report Type: 
  Country: None (occurrence: None)
  Receive Date: 20061016
  Receipt Date: 20060105
  Transmission Date: 20070319
  Serious: Yes (Death, Hospitalization)
  Sender: FDA-Public Use
  Company Number: UG-GILEAD-2006-0009070

PATIENT
  Sex: Female

DRUGS (3)
  1. TENOFOVIR DISOPROXIL FUMARATE [Suspect]
     Indication: HIV INFECTION
     Dates: end: 20051227
  2. COTRIM [Suspect]
     Dates: end: 20051227
  3. COMBIVIR [Concomitant]
     Indication: HIV INFECTION
     Dates: end: 20051227

REACTIONS (1)
  - RENAL FAILURE ACUTE [None]
